FAERS Safety Report 7442199-9 (Version None)
Quarter: 2011Q2

REPORT INFORMATION
  Report Type: 
  Country: None (occurrence: None)
  Receive Date: 20110428
  Receipt Date: 20110414
  Transmission Date: 20111010
  Serious: Yes (Hospitalization)
  Sender: FDA-Public Use
  Company Number: KR-CELGENEUS-286-C5013-11033090

PATIENT
  Sex: Male
  Weight: 67.7 kg

DRUGS (10)
  1. ALPRAZOLAM [Concomitant]
     Indication: TREMOR
     Route: 048
     Dates: start: 20101019, end: 20110326
  2. FAMOTIDINE [Concomitant]
     Dosage: 20 MILLIGRAM
     Route: 048
     Dates: start: 20110106
  3. LENALIDOMIDE [Suspect]
     Indication: MULTIPLE MYELOMA
     Dosage: 25 MILLIGRAM
     Route: 048
     Dates: start: 20100720
  4. DEXAMETHASONE [Suspect]
     Dosage: 40 MILLIGRAM
     Route: 065
     Dates: start: 20110303, end: 20110330
  5. PAMIDRONATE DISODIUM [Concomitant]
     Indication: PROPHYLAXIS
     Dosage: 90 MILLIGRAM
     Route: 051
     Dates: start: 20110303, end: 20110303
  6. DEXAMETHASONE [Suspect]
     Indication: MULTIPLE MYELOMA
     Dosage: 40 MILLIGRAM
     Route: 065
     Dates: start: 20100720
  7. AROTINOLOL [Concomitant]
     Indication: TREMOR
     Dosage: 10 MILLIGRAM
     Route: 048
     Dates: start: 20101019, end: 20110326
  8. METOCLOPRAMIDE [Concomitant]
     Route: 048
     Dates: start: 20110303
  9. LENALIDOMIDE [Suspect]
     Dosage: 25 MILLIGRAM
     Route: 048
     Dates: start: 20110303, end: 20110323
  10. MAGNESIUM OXIDE [Concomitant]
     Indication: PROPHYLAXIS
     Dosage: 20 MILLIGRAM
     Route: 048
     Dates: start: 20100920

REACTIONS (2)
  - PNEUMONIA [None]
  - MENINGITIS [None]
